FAERS Safety Report 15104293 (Version 6)
Quarter: 2019Q1

REPORT INFORMATION
  Report Type: Spontaneous
  Country: US (occurrence: US)
  Receive Date: 20180703
  Receipt Date: 20190318
  Transmission Date: 20190417
  Serious: Yes (Hospitalization)
  Sender: FDA-Public Use
  Company Number: US-ACTELION-A-US2018-174508

PATIENT
  Sex: Female

DRUGS (19)
  1. DICYCLOMINE [Concomitant]
     Active Substance: DICYCLOMINE HYDROCHLORIDE
  2. PENTOXIFILIN [Concomitant]
  3. TIZANIDINE. [Concomitant]
     Active Substance: TIZANIDINE
  4. IRON [Concomitant]
     Active Substance: IRON
  5. LEVOTHYROXINE. [Concomitant]
     Active Substance: LEVOTHYROXINE
  6. VITAMIN D3 [Concomitant]
     Active Substance: CHOLECALCIFEROL
  7. ASPIRIN 81 [Concomitant]
     Active Substance: ASPIRIN
  8. HYDROCHLOROTHIAZIDE. [Concomitant]
     Active Substance: HYDROCHLOROTHIAZIDE
  9. LISINOPRIL. [Concomitant]
     Active Substance: LISINOPRIL
  10. MODAFINIL. [Concomitant]
     Active Substance: MODAFINIL
  11. PANTOPRAZOLE SODIUM. [Concomitant]
     Active Substance: PANTOPRAZOLE SODIUM
  12. CARTIA XT [Concomitant]
     Active Substance: DILTIAZEM HYDROCHLORIDE
  13. HYDROXYCHLOROQUINE SULFATE. [Concomitant]
     Active Substance: HYDROXYCHLOROQUINE SULFATE
  14. CITRUCEL [Concomitant]
     Active Substance: METHYLCELLULOSE (4000 MPA.S)
  15. OPSUMIT [Suspect]
     Active Substance: MACITENTAN
     Indication: PULMONARY ARTERIAL HYPERTENSION
     Dosage: 10 MG, UNK
     Route: 048
  16. HYDROCODONE BITARTRATE AND ACETAMINOPHEN [Concomitant]
     Active Substance: ACETAMINOPHEN\HYDROCODONE BITARTRATE
  17. MULTIVITAMIN [Concomitant]
     Active Substance: VITAMINS
  18. ALEVE [Concomitant]
     Active Substance: NAPROXEN SODIUM
  19. CLOPIDOGREL BISULFATE. [Concomitant]
     Active Substance: CLOPIDOGREL BISULFATE

REACTIONS (5)
  - Pleural effusion [Recovering/Resolving]
  - Malaise [Unknown]
  - Cardiac disorder [Unknown]
  - Fluid overload [Unknown]
  - Product dose omission [Unknown]
